FAERS Safety Report 15204429 (Version 1)
Quarter: 2018Q3

REPORT INFORMATION
  Report Type: Report from Study
  Country: None (occurrence: CA)
  Receive Date: 20180726
  Receipt Date: 20180726
  Transmission Date: 20181010
  Serious: Yes (Death, Other)
  Sender: FDA-Public Use
  Company Number: CA-ABBVIE-18K-028-2429869-00

PATIENT
  Age: 57 Year
  Sex: Male

DRUGS (1)
  1. MAVIRET [Suspect]
     Active Substance: GLECAPREVIR\PIBRENTASVIR
     Indication: CHRONIC HEPATITIS C
     Route: 048
     Dates: start: 20180320

REACTIONS (3)
  - Myocardial infarction [Fatal]
  - Renal disorder [Fatal]
  - Anxiety [Fatal]

NARRATIVE: CASE EVENT DATE: 20180421
